FAERS Safety Report 8550404-0 (Version None)
Quarter: 2012Q3

REPORT INFORMATION
  Report Type: 
  Country: None (occurrence: None)
  Receive Date: 20120718
  Receipt Date: 20120709
  Transmission Date: 20120928
  Serious: Yes (Death)
  Sender: FDA-Public Use
  Company Number: ADR-2012-01291

PATIENT
  Age: 14 Year
  Sex: Female

DRUGS (2)
  1. LIORESAL [Suspect]
     Indication: BRAIN INJURY
     Dosage: 105.0 MCG/AY
  2. LIORESAL [Suspect]
     Indication: MUSCLE SPASTICITY
     Dosage: 105.0 MCG/AY

REACTIONS (1)
  - CONVULSIVE THRESHOLD LOWERED [None]
